FAERS Safety Report 22360095 (Version 1)
Quarter: 2023Q2

REPORT INFORMATION
  Report Type: Spontaneous
  Country: JP (occurrence: None)
  Receive Date: 20230524
  Receipt Date: 20230524
  Transmission Date: 20230721
  Serious: Yes (Life-Threatening, Hospitalization)
  Sender: FDA-Public Use
  Company Number: 2023A117846

PATIENT
  Age: 45 Year
  Sex: Female

DRUGS (2)
  1. LYNPARZA [Suspect]
     Active Substance: OLAPARIB
     Indication: Ovarian cancer
     Route: 048
     Dates: start: 20210602, end: 20221015
  2. AVASTIN [Concomitant]
     Active Substance: BEVACIZUMAB
     Indication: Ovarian cancer
     Dosage: DOSE UNKNOWN
     Route: 041
     Dates: start: 2021

REACTIONS (2)
  - Epstein-Barr virus associated lymphoproliferative disorder [Not Recovered/Not Resolved]
  - Meningitis viral [Not Recovered/Not Resolved]

NARRATIVE: CASE EVENT DATE: 20221001
